FAERS Safety Report 4281571-5 (Version None)
Quarter: 2004Q1

REPORT INFORMATION
  Report Type: 
  Country: None (occurrence: None)
  Receive Date: 20040129
  Receipt Date: 20031031
  Transmission Date: 20041129
  Serious: Yes (Disabling, Other)
  Sender: FDA-Public Use
  Company Number: PHNR2003AU01533

PATIENT
  Age: 50 Year
  Sex: Female

DRUGS (2)
  1. GLEEVEC [Suspect]
     Indication: GASTROINTESTINAL STROMAL TUMOUR
     Dosage: 300 MG, QD
     Dates: start: 20030624, end: 20030729
  2. GLEEVEC [Suspect]
     Dosage: 400 MG, QD
     Dates: start: 20020910, end: 20030624

REACTIONS (1)
  - SCHIZOPHRENIA [None]
